FAERS Safety Report 5300017-9 (Version None)
Quarter: 2007Q2

REPORT INFORMATION
  Report Type: 
  Country: None (occurrence: None)
  Receive Date: 20070410
  Receipt Date: 20070330
  Transmission Date: 20071010
  Serious: Yes (Life-Threatening)
  Sender: FDA-Public Use
  Company Number: B0462585A

PATIENT
  Age: 80 Year
  Sex: Male

DRUGS (8)
  1. ZOVIRAX [Suspect]
     Indication: MENINGITIS HERPES
     Dosage: 250 MG / PER DAY / INTRAVENOUS INFUS
     Dates: start: 20070311, end: 20070313
  2. SODIUM CHLORIDE [Concomitant]
  3. LOXOPROFEN [Concomitant]
  4. CALCIUM CARBONATE [Concomitant]
  5. HYOSCINE HBR HYT [Concomitant]
  6. BROTIZOLAM [Concomitant]
  7. LANSOPRAZOLE [Concomitant]
  8. AMLODIPINE [Concomitant]

REACTIONS (7)
  - BRAIN OEDEMA [None]
  - CEREBRAL ATROPHY [None]
  - CSF CELL COUNT INCREASED [None]
  - HYDROCEPHALUS [None]
  - ISCHAEMIA [None]
  - LOSS OF CONSCIOUSNESS [None]
  - PNEUMONIA ASPIRATION [None]
